FAERS Safety Report 5823072-6 (Version None)
Quarter: 2008Q3

REPORT INFORMATION
  Report Type: 
  Country: None (occurrence: None)
  Receive Date: 20080725
  Receipt Date: 20070706
  Transmission Date: 20090109
  Serious: No
  Sender: FDA-Public Use
  Company Number: US-AMGEN-KDL225744

PATIENT
  Sex: Female
  Weight: 84 kg

DRUGS (2)
  1. PROCRIT [Suspect]
     Indication: PRE-EXISTING DISEASE
     Dates: start: 20070511
  2. INTERFERON [Concomitant]

REACTIONS (1)
  - URTICARIA [None]
